FAERS Safety Report 19427191 (Version 1)
Quarter: 2021Q2

REPORT INFORMATION
  Report Type: Spontaneous
  Country: US (occurrence: US)
  Receive Date: 20210616
  Receipt Date: 20210616
  Transmission Date: 20210717
  Serious: Yes (Hospitalization)
  Sender: FDA-Public Use
  Company Number: None

PATIENT
  Age: 69 Year
  Sex: Male

DRUGS (5)
  1. MYCOPHENOLATE [Concomitant]
     Active Substance: MYCOPHENOLIC ACID
  2. TACROLIMUS. [Concomitant]
     Active Substance: TACROLIMUS
  3. ALLOPURINOL. [Concomitant]
     Active Substance: ALLOPURINOL
  4. VALGANCICLOV [Concomitant]
  5. EVEROLIMUS. [Suspect]
     Active Substance: EVEROLIMUS
     Indication: HEART TRANSPLANT
     Route: 048
     Dates: start: 20210216

REACTIONS (2)
  - Heart transplant [None]
  - Therapy interrupted [None]
